FAERS Safety Report 4510433-0 (Version None)
Quarter: 2004Q4

REPORT INFORMATION
  Report Type: 
  Country: None (occurrence: None)
  Receive Date: 20041124
  Receipt Date: 20041118
  Transmission Date: 20050328
  Serious: Yes (Other)
  Sender: FDA-Public Use
  Company Number: US-GLAXOSMITHKLINE-A0534478A

PATIENT
  Age: 24 Year
  Sex: Female

DRUGS (4)
  1. WELLBUTRIN [Suspect]
     Indication: DEPRESSION
     Route: 048
  2. WELLBUTRIN [Suspect]
     Dosage: 300MG PER DAY
     Route: 048
  3. PROZAC [Concomitant]
  4. DEPAKOTE [Concomitant]

REACTIONS (5)
  - ARTHRALGIA [None]
  - BURSITIS [None]
  - HEADACHE [None]
  - JOINT EFFUSION [None]
  - UTERINE HAEMORRHAGE [None]
